FAERS Safety Report 18827177 (Version 1)
Quarter: 2021Q1

REPORT INFORMATION
  Report Type: Spontaneous
  Country: US (occurrence: US)
  Receive Date: 20210201
  Receipt Date: 20210201
  Transmission Date: 20210419
  Serious: No
  Sender: FDA-Public Use
  Company Number: US-ABBVIE-20K-163-3451664-00

PATIENT
  Age: 47 Year
  Sex: Male
  Weight: 97.61 kg

DRUGS (2)
  1. HUMIRA [Suspect]
     Active Substance: ADALIMUMAB
     Indication: PSORIATIC ARTHROPATHY
     Route: 058
     Dates: start: 202003
  2. ADVIL [Concomitant]
     Active Substance: IBUPROFEN
     Indication: MUSCULOSKELETAL STIFFNESS

REACTIONS (2)
  - Sinusitis [Recovered/Resolved]
  - Device issue [Unknown]

NARRATIVE: CASE EVENT DATE: 202005
